FAERS Safety Report 10209504 (Version 1)
Quarter: 2014Q2

REPORT INFORMATION
  Report Type: Report from Study
  Country: PE (occurrence: PE)
  Receive Date: 20140601
  Receipt Date: 20140601
  Transmission Date: 20141212
  Serious: Yes (Other)
  Sender: FDA-Public Use
  Company Number: PE-BRISTOL-MYERS SQUIBB COMPANY-20870846

PATIENT
  Age: 76 Year
  Sex: Male

DRUGS (1)
  1. GLUCOVANCE TABS 2.5 MG/500 MG [Suspect]
     Indication: DIABETES MELLITUS
     Dosage: 2.5MG/500 MG TABLET
     Route: 048
     Dates: end: 201404

REACTIONS (2)
  - Cerebrovascular accident [Unknown]
  - Hypotension [Unknown]
